FAERS Safety Report 18674848 (Version 1)
Quarter: 2020Q4

REPORT INFORMATION
  Report Type: Spontaneous
  Country: US (occurrence: US)
  Receive Date: 20201224
  Receipt Date: 20201224
  Transmission Date: 20210114
  Serious: Yes (Hospitalization)
  Sender: FDA-Public Use
  Company Number: None

PATIENT
  Age: 70 Year
  Sex: Male
  Weight: 70.4 kg

DRUGS (2)
  1. RADIATION THERAPY [Concomitant]
     Active Substance: RADIATION THERAPY
  2. NIVOLUMAB 480MG IV Q4 WEEKS [Suspect]
     Active Substance: NIVOLUMAB
     Indication: NASOPHARYNGEAL CANCER RECURRENT
     Dosage: ?          OTHER FREQUENCY:Q4 WEEKS;?
     Route: 042
     Dates: start: 20201027

REACTIONS (5)
  - Troponin increased [None]
  - Haemoglobin decreased [None]
  - Occult blood positive [None]
  - Chest pain [None]
  - Dyspnoea [None]

NARRATIVE: CASE EVENT DATE: 20201224
